FAERS Safety Report 17616907 (Version 1)
Quarter: 2020Q2

REPORT INFORMATION
  Report Type: Spontaneous
  Country: US (occurrence: US)
  Receive Date: 20200402
  Receipt Date: 20200402
  Transmission Date: 20200713
  Serious: Yes (Other)
  Sender: FDA-Public Use
  Company Number: None

PATIENT
  Age: 57 Year
  Sex: Male
  Weight: 80.3 kg

DRUGS (2)
  1. DESCOVY (EMTRICITABINE 200 MG/TENOFOVIR ALAFENAMIDE 25 MG) [Concomitant]
     Dates: start: 20200317, end: 20200319
  2. DESCOVY [Suspect]
     Active Substance: EMTRICITABINE\TENOFOVIR ALAFENAMIDE FUMARATE
     Indication: CORONAVIRUS INFECTION
     Route: 048
     Dates: start: 20200317, end: 20200319

REACTIONS (1)
  - Acute kidney injury [None]
